FAERS Safety Report 6591052-1 (Version None)
Quarter: 2010Q1

REPORT INFORMATION
  Report Type: 
  Country: None (occurrence: None)
  Receive Date: 20100219
  Receipt Date: 20100210
  Transmission Date: 20100710
  Serious: Yes (Hospitalization)
  Sender: FDA-Public Use
  Company Number: FR-SANOFI-AVENTIS-200913213FR

PATIENT
  Age: 59 Year
  Sex: Female

DRUGS (5)
  1. RIFAMPICIN [Suspect]
     Indication: ENDOCARDITIS
     Dosage: DOSE UNIT: 600 MG
     Route: 042
     Dates: start: 20090622, end: 20090706
  2. CALCIPARINE ^DIFREX^ [Concomitant]
     Dosage: DOSE UNIT: 12500 IU
     Route: 058
     Dates: start: 20090626
  3. TARGOCID [Concomitant]
     Indication: ENDOCARDITIS
     Dosage: DOSE UNIT: 400 MG
     Route: 042
     Dates: start: 20090622, end: 20090717
  4. ESOMEPRAZOLE MAGNESIUM [Concomitant]
     Indication: PROPHYLAXIS AGAINST GASTROINTESTINAL ULCER
     Dosage: DOSE UNIT: 40 MG
     Route: 042
     Dates: start: 20090620
  5. CORDARONE [Concomitant]
     Dosage: DOSE UNIT: 200 MG
     Route: 048
     Dates: start: 20090628

REACTIONS (3)
  - BLOOD AMYLASE INCREASED [None]
  - LIPASE INCREASED [None]
  - PANCREATITIS [None]
